FAERS Safety Report 24531926 (Version 1)
Quarter: 2024Q4

REPORT INFORMATION
  Report Type: Spontaneous
  Country: DE (occurrence: DE)
  Receive Date: 20241022
  Receipt Date: 20241022
  Transmission Date: 20250115
  Serious: Yes (Other)
  Sender: AMGEN
  Company Number: DE-SANDOZ-SDZ2024DE085181

PATIENT
  Sex: Female

DRUGS (1)
  1. ETANERCEPT [Suspect]
     Active Substance: ETANERCEPT
     Indication: Rheumatic disorder
     Dosage: UNK
     Route: 065

REACTIONS (1)
  - Breast cancer [Unknown]
